FAERS Safety Report 13399110 (Version 2)
Quarter: 2019Q2

REPORT INFORMATION
  Report Type: Spontaneous
  Country: US (occurrence: US)
  Receive Date: 20170404
  Receipt Date: 20190427
  Transmission Date: 20190711
  Serious: Yes (Death, Hospitalization)
  Sender: FDA-Public Use
  Company Number: US-AUROBINDO-AUR-APL-2017-31702

PATIENT

DRUGS (1)
  1. GABAPENTIN. [Suspect]
     Active Substance: GABAPENTIN
     Indication: PRODUCT USED FOR UNKNOWN INDICATION
     Dosage: 1200 MG, ONCE A DAY
     Route: 065

REACTIONS (7)
  - Cardiac disorder [Fatal]
  - Fall [Recovering/Resolving]
  - Asthenia [Recovering/Resolving]
  - Septic shock [Fatal]
  - Dizziness [Recovering/Resolving]
  - Toxicity to various agents [Recovering/Resolving]
  - Pneumonia [Fatal]
